FAERS Safety Report 5241939-7 (Version None)
Quarter: 2007Q1

REPORT INFORMATION
  Report Type: 
  Country: None (occurrence: None)
  Receive Date: 20070220
  Receipt Date: 20070214
  Transmission Date: 20070707
  Serious: Yes (Death)
  Sender: FDA-Public Use
  Company Number: US-ROXANE LABORATORIES, INC-2007-DE-00962GD

PATIENT
  Age: 31 Year
  Sex: Female
  Weight: 55 kg

DRUGS (13)
  1. MORPHINE [Suspect]
     Indication: CANCER PAIN
     Dosage: BASAL INFUSION OF 0,36 MG/KG/H, 10 MG BOLUS EVERY 5 MIN, MAXIMUM 12 DOSES PER H, TITRATION TO 0,91 M
  2. MORPHINE [Suspect]
     Dosage: TITRATION DOWN TO CONTINUOUS INFUSION OF 0.09 MG/KG/H, ESCALATION TO 21.8 MG/KG/H
  3. OXYCODONE HCL [Suspect]
     Indication: CANCER PAIN
  4. OXYCODONE HCL [Suspect]
  5. GABAPENTIN [Suspect]
     Indication: CANCER PAIN
  6. KETAMINE HCL [Suspect]
     Indication: CANCER PAIN
     Dosage: START OF INFUSION WITH 0.2 MG/KG/H, TITRATION TO A MAXIMUM OF 0.65 MG/KG/H, THEN TITRATED OFF, REINS
     Route: 042
  7. MITOMYCIN [Concomitant]
     Indication: COLON CANCER
  8. MITOMYCIN [Concomitant]
     Indication: METASTASIS
  9. FLUOROURACIL [Concomitant]
     Indication: COLON CANCER
  10. FLUOROURACIL [Concomitant]
     Indication: METASTASIS
  11. LEUCOVORIN CALCIUM [Concomitant]
     Indication: COLON CANCER
  12. LEUCOVORIN CALCIUM [Concomitant]
     Indication: METASTASIS
  13. HYDROMORPHONE HCL [Concomitant]
     Indication: CANCER PAIN

REACTIONS (3)
  - DRUG INEFFECTIVE [None]
  - NEOPLASM PROGRESSION [None]
  - SEDATION [None]
